FAERS Safety Report 10195605 (Version 7)
Quarter: 2014Q4

REPORT INFORMATION
  Report Type: Spontaneous
  Country: CA (occurrence: CA)
  Receive Date: 20140527
  Receipt Date: 20141210
  Transmission Date: 20150528
  Serious: Yes (Death, Hospitalization, Other)
  Sender: FDA-Public Use
  Company Number: CA-ROCHE-1403764

PATIENT
  Age: 84 Year
  Sex: Female

DRUGS (16)
  1. HYDROCHLOROTHIAZIDE. [Concomitant]
     Active Substance: HYDROCHLOROTHIAZIDE
  2. XOLAIR [Suspect]
     Active Substance: OMALIZUMAB
     Route: 058
     Dates: start: 20140515
  3. SINGULAIR [Concomitant]
     Active Substance: MONTELUKAST SODIUM
  4. DIAMICRON [Concomitant]
     Active Substance: GLICLAZIDE
  5. METFORMIN [Concomitant]
     Active Substance: METFORMIN HYDROCHLORIDE
  6. XOLAIR [Suspect]
     Active Substance: OMALIZUMAB
     Indication: ASTHMA
     Route: 058
     Dates: start: 20121019
  7. XOLAIR [Suspect]
     Active Substance: OMALIZUMAB
     Route: 058
     Dates: start: 20130206
  8. XOLAIR [Suspect]
     Active Substance: OMALIZUMAB
     Route: 058
     Dates: start: 20121212
  9. XOLAIR [Suspect]
     Active Substance: OMALIZUMAB
     Route: 058
     Dates: start: 20131128
  10. VENTOLIN [Concomitant]
     Active Substance: ALBUTEROL SULFATE
  11. SYMBICORT [Concomitant]
     Active Substance: BUDESONIDE\FORMOTEROL FUMARATE DIHYDRATE
  12. XOLAIR [Suspect]
     Active Substance: OMALIZUMAB
     Route: 058
     Dates: start: 20140220
  13. PREDNISONE. [Concomitant]
     Active Substance: PREDNISONE
  14. PULMICORT TURBUHALER [Concomitant]
     Active Substance: BUDESONIDE
  15. SALBUTAMOL [Concomitant]
     Active Substance: ALBUTEROL
  16. FOSAMAX [Concomitant]
     Active Substance: ALENDRONATE SODIUM

REACTIONS (28)
  - Urinary tract infection [Unknown]
  - Terminal state [Unknown]
  - Nervousness [Unknown]
  - Insomnia [Unknown]
  - Asthenia [Unknown]
  - Lethargy [Unknown]
  - Peripheral swelling [Unknown]
  - Body temperature decreased [Unknown]
  - Gait disturbance [Unknown]
  - Speech disorder [Unknown]
  - Cystitis [Unknown]
  - Death [Fatal]
  - Communication disorder [Unknown]
  - Feeling abnormal [Unknown]
  - Dehydration [Unknown]
  - Abnormal behaviour [Recovering/Resolving]
  - Respiratory disorder [Unknown]
  - Cognitive disorder [Unknown]
  - General physical health deterioration [Not Recovered/Not Resolved]
  - Nasopharyngitis [Unknown]
  - Weight decreased [Unknown]
  - Sinus congestion [Unknown]
  - Breath sounds abnormal [Unknown]
  - Influenza [Unknown]
  - Unresponsive to stimuli [Unknown]
  - Dyspnoea [Unknown]
  - Dementia Alzheimer^s type [Not Recovered/Not Resolved]
  - Decreased appetite [Unknown]

NARRATIVE: CASE EVENT DATE: 2014
